FAERS Safety Report 13223557 (Version 1)
Quarter: 2017Q1

REPORT INFORMATION
  Report Type: Spontaneous
  Country: US (occurrence: US)
  Receive Date: 20170212
  Receipt Date: 20170212
  Transmission Date: 20170428
  Serious: No
  Sender: FDA-Public Use
  Company Number: US-ACORDA-ACO_127204_2016

PATIENT
  Age: 56 Year
  Sex: Male
  Weight: 102.95 kg

DRUGS (6)
  1. AMPYRA [Suspect]
     Active Substance: DALFAMPRIDINE
     Dosage: UNK
  2. CHOLESTEROL PILL [Concomitant]
     Active Substance: UNSPECIFIED INGREDIENT
     Indication: PRODUCT USED FOR UNKNOWN INDICATION
     Dosage: UNK
     Route: 065
  3. AMPYRA [Suspect]
     Active Substance: DALFAMPRIDINE
     Indication: GAIT DISTURBANCE
     Dosage: 10 MG, Q 12 HRS
     Route: 048
     Dates: start: 2014
  4. BLOOD PRESSURE PILLS [Concomitant]
     Active Substance: UNSPECIFIED INGREDIENT
     Indication: PRODUCT USED FOR UNKNOWN INDICATION
     Dosage: UNK
     Route: 065
  5. ALLERGY MEDICATION [Concomitant]
     Active Substance: DIPHENHYDRAMINE HYDROCHLORIDE
     Indication: HYPERSENSITIVITY
     Dosage: UNK
     Route: 065
  6. AMPYRA [Suspect]
     Active Substance: DALFAMPRIDINE
     Dosage: 10 MG, QD
     Route: 048
     Dates: start: 20160805, end: 20160806

REACTIONS (11)
  - Mobility decreased [Unknown]
  - Weight increased [Unknown]
  - Malaise [Unknown]
  - Therapy cessation [Recovered/Resolved]
  - Drug ineffective [Unknown]
  - Constipation [Unknown]
  - Gait disturbance [Unknown]
  - Urinary tract disorder [Unknown]
  - Abdominal discomfort [Unknown]
  - Visual impairment [Unknown]
  - Inappropriate schedule of drug administration [Unknown]

NARRATIVE: CASE EVENT DATE: 20160805
